FAERS Safety Report 4950949-6 (Version None)
Quarter: 2006Q1

REPORT INFORMATION
  Report Type: 
  Country: None (occurrence: None)
  Receive Date: 20060316
  Receipt Date: 20060227
  Transmission Date: 20060701
  Serious: Yes (Hospitalization)
  Sender: FDA-Public Use
  Company Number: DSA_27834_2006

PATIENT
  Age: 22 Year
  Sex: Female

DRUGS (4)
  1. TAVOR [Suspect]
     Dosage: 10 MG ONCE PO
     Route: 048
     Dates: start: 20060224, end: 20060224
  2. VENLAFAXINE HCL [Suspect]
     Dosage: 2000 MG ONCE PO
     Route: 048
     Dates: start: 20060224, end: 20060224
  3. SEROQUEL [Suspect]
     Dosage: 2000 MG ONCE PO
     Route: 048
     Dates: start: 20060224, end: 20060224
  4. BEER/WINE [Suspect]
     Dosage: 1 BOTTLE ONCE PO
     Route: 048
     Dates: start: 20060224, end: 20060224

REACTIONS (6)
  - ALCOHOL USE [None]
  - INTENTIONAL OVERDOSE [None]
  - SOMNOLENCE [None]
  - SOPOR [None]
  - SUICIDE ATTEMPT [None]
  - TACHYCARDIA [None]
